FAERS Safety Report 5265852-4 (Version None)
Quarter: 2007Q1

REPORT INFORMATION
  Report Type: 
  Country: None (occurrence: None)
  Receive Date: 20070312
  Receipt Date: 20070312
  Transmission Date: 20070707
  Serious: Yes (Hospitalization)
  Sender: FDA-Public Use
  Company Number: None

PATIENT
  Age: 78 Year
  Sex: Male
  Weight: 63.1 kg

DRUGS (1)
  1. VARENICLINE   1 MG    PFIZER [Suspect]
     Indication: SMOKING CESSATION THERAPY
     Dosage: 1 MG  DAILY  PO
     Route: 048
     Dates: start: 20070216, end: 20070305

REACTIONS (1)
  - GASTROINTESTINAL HAEMORRHAGE [None]
